FAERS Safety Report 9431859 (Version 2)
Quarter: 2014Q3

REPORT INFORMATION
  Report Type: Spontaneous
  Country: DK (occurrence: DK)
  Receive Date: 20130731
  Receipt Date: 20140901
  Transmission Date: 20150326
  Serious: Yes (Other)
  Sender: FDA-Public Use
  Company Number: PHHY2013DK079313

PATIENT
  Age: 65 Year
  Sex: Female

DRUGS (1)
  1. ZOMETA [Suspect]
     Active Substance: ZOLEDRONIC ACID
     Indication: METASTASES TO BONE
     Dosage: 4 MG/100 ML, Q3MO
     Route: 042
     Dates: end: 20120625

REACTIONS (9)
  - Exposed bone in jaw [Unknown]
  - Erythema [Unknown]
  - Dental fistula [Unknown]
  - Pain [Unknown]
  - Infection [Unknown]
  - Jaw operation [Unknown]
  - Gingivitis [Unknown]
  - Osteonecrosis of jaw [Not Recovered/Not Resolved]
  - Local swelling [Unknown]

NARRATIVE: CASE EVENT DATE: 20120817
